FAERS Safety Report 6855537-2 (Version None)
Quarter: 2010Q3

REPORT INFORMATION
  Report Type: 
  Country: None (occurrence: None)
  Receive Date: 20100719
  Receipt Date: 20100712
  Transmission Date: 20110219
  Serious: Yes (Hospitalization)
  Sender: FDA-Public Use
  Company Number: BE-BAYER-201014788GPV

PATIENT
  Age: 64 Year
  Sex: Female
  Weight: 50 kg

DRUGS (3)
  1. SORAFENIB [Suspect]
     Indication: OVARIAN EPITHELIAL CANCER
     Dosage: TOTAL DAILY DOSE: 800 MG
     Route: 048
     Dates: start: 20100108, end: 20100211
  2. BISOPROLOL FUMARATE AND HYDROCHLOROTHIAZIDE [Concomitant]
     Indication: HYPERTENSION
     Route: 048
     Dates: start: 20091016
  3. EUCERIN HYDRATING CREAM [Concomitant]
     Indication: PROPHYLAXIS
     Route: 061
     Dates: start: 20090821

REACTIONS (1)
  - ATRIAL FIBRILLATION [None]
